FAERS Safety Report 12136874 (Version 3)
Quarter: 2018Q2

REPORT INFORMATION
  Report Type: Spontaneous
  Country: US (occurrence: US)
  Receive Date: 20160302
  Receipt Date: 20180413
  Transmission Date: 20180711
  Serious: Yes (Hospitalization, Disabling, Other)
  Sender: FDA-Public Use
  Company Number: US-ENDO PHARMACEUTICALS INC.-2015-004570

PATIENT
  Age: 56 Year
  Sex: Male
  Weight: 132.43 kg

DRUGS (4)
  1. EMBEDA [Concomitant]
     Active Substance: MORPHINE SULFATE\NALTREXONE HYDROCHLORIDE
     Indication: PAIN
     Dosage: UNK UNKNOWN, UNKNOWN
     Route: 065
  2. LANTUS [Concomitant]
     Active Substance: INSULIN GLARGINE
     Indication: DIABETES MELLITUS
     Dosage: UNK UNKNOWN, UNKNOWN
     Route: 065
  3. TESTIM [Suspect]
     Active Substance: TESTOSTERONE
     Indication: ANDROGEN REPLACEMENT THERAPY
     Dosage: UNK UNKNOWN, DAILY
     Route: 062
     Dates: start: 20120227, end: 20121226
  4. MAGNESIUM OXIDE TABLETS [Concomitant]
     Indication: SUPPLEMENTATION THERAPY
     Dosage: UNKUNK UNKNOWN, UNKNOWN
     Route: 065

REACTIONS (2)
  - Acute myocardial infarction [Not Recovered/Not Resolved]
  - Stenosis [Unknown]

NARRATIVE: CASE EVENT DATE: 20130122
